FAERS Safety Report 10239489 (Version 2)
Quarter: 2014Q2

REPORT INFORMATION
  Report Type: Report from Study
  Country: CA (occurrence: CA)
  Receive Date: 20140616
  Receipt Date: 20140627
  Transmission Date: 20141212
  Serious: Yes (Hospitalization)
  Sender: FDA-Public Use
  Company Number: CA-ASTELLAS-2014EU007583

PATIENT
  Age: 61 Year
  Sex: Female
  Weight: 60.5 kg

DRUGS (7)
  1. ENZALUTAMIDE [Suspect]
     Indication: BREAST CANCER
     Dosage: 160 MG, UNK
     Route: 048
     Dates: start: 20140425, end: 20140525
  2. PAMIDRONATE [Concomitant]
     Indication: ROUTINE HEALTH MAINTENANCE
     Route: 042
     Dates: start: 20131220
  3. SUPER B COMPLEX                    /01995301/ [Concomitant]
     Indication: SUPPLEMENTATION THERAPY
     Route: 048
     Dates: start: 1999
  4. CHLORELLA                          /01723301/ [Concomitant]
     Indication: SUPPLEMENTATION THERAPY
     Route: 048
     Dates: start: 2013
  5. PROBIOTICS NOS [Concomitant]
     Indication: SUPPLEMENTATION THERAPY
     Route: 048
     Dates: start: 20140221
  6. TYLENOL                            /00020001/ [Concomitant]
     Indication: ARTHRALGIA
     Route: 048
     Dates: start: 20140513
  7. TYLENOL                            /00020001/ [Concomitant]
     Indication: MYALGIA

REACTIONS (1)
  - Rash [Recovered/Resolved]
